FAERS Safety Report 21715637 (Version 1)
Quarter: 2022Q4

REPORT INFORMATION
  Report Type: Spontaneous
  Country: US (occurrence: US)
  Receive Date: 20221212
  Receipt Date: 20221212
  Transmission Date: 20230112
  Serious: Yes (Hospitalization, Other)
  Sender: FDA-Public Use
  Company Number: US-PROCTER_AND_GAMBLE-PH22012198

PATIENT
  Age: 52 Year
  Sex: Male

DRUGS (1)
  1. DOXYLAMINE SUCCINATE [Suspect]
     Active Substance: DOXYLAMINE SUCCINATE
     Indication: Insomnia
     Dosage: 30 TABLET, 1 ONLY
     Route: 048

REACTIONS (15)
  - Rhabdomyolysis [Unknown]
  - Acute kidney injury [Unknown]
  - Acute hepatic failure [Unknown]
  - Oliguria [Recovering/Resolving]
  - Hemiparesis [Unknown]
  - Overdose [Unknown]
  - Blood creatine phosphokinase increased [Unknown]
  - Blood urea nitrogen/creatinine ratio increased [Unknown]
  - Aspartate aminotransferase increased [Unknown]
  - Alanine aminotransferase increased [Unknown]
  - Blood phosphorus increased [Unknown]
  - Hypoaesthesia [Unknown]
  - Musculoskeletal pain [Unknown]
  - Nausea [Unknown]
  - Vomiting [Unknown]
